FAERS Safety Report 5794074-3 (Version None)
Quarter: 2008Q2

REPORT INFORMATION
  Report Type: 
  Country: None (occurrence: None)
  Receive Date: 20080627
  Receipt Date: 20080613
  Transmission Date: 20081010
  Serious: Yes (Other)
  Sender: FDA-Public Use
  Company Number: FR-GENENTECH-262758

PATIENT
  Sex: Female
  Weight: 72 kg

DRUGS (5)
  1. XOLAIR [Suspect]
     Indication: ASTHMA
     Dosage: 300 MG, 1/MONTH
     Route: 042
     Dates: start: 20080401
  2. GARDENAL [Concomitant]
     Indication: DRUG USE FOR UNKNOWN INDICATION
  3. VALIUM [Concomitant]
     Indication: DRUG USE FOR UNKNOWN INDICATION
  4. SOLUPRED [Concomitant]
     Indication: DRUG USE FOR UNKNOWN INDICATION
  5. SERETIDE [Concomitant]
     Indication: ASTHMA

REACTIONS (1)
  - WEIGHT INCREASED [None]
